FAERS Safety Report 18684440 (Version 2)
Quarter: 2021Q1

REPORT INFORMATION
  Report Type: Spontaneous
  Country: US (occurrence: US)
  Receive Date: 20201230
  Receipt Date: 20210104
  Transmission Date: 20210419
  Serious: No
  Sender: FDA-Public Use
  Company Number: US-PFIZER INC-2020516402

PATIENT
  Age: 59 Year
  Sex: Female

DRUGS (1)
  1. IBRANCE [Suspect]
     Active Substance: PALBOCICLIB
     Indication: BREAST CANCER FEMALE
     Dosage: 100 MG, CYCLIC (QD (EVERY DAY)DAYS 1?21EVERY 28DAYS)
     Dates: start: 20200207

REACTIONS (7)
  - Nausea [Unknown]
  - Dry skin [Unknown]
  - Diarrhoea [Unknown]
  - Fatigue [Unknown]
  - Stomatitis [Unknown]
  - Nerve injury [Unknown]
  - Alopecia [Unknown]

NARRATIVE: CASE EVENT DATE: 2020
